FAERS Safety Report 11253185 (Version 2)
Quarter: 2015Q3

REPORT INFORMATION
  Report Type: Spontaneous
  Country: FR (occurrence: FR)
  Receive Date: 20150709
  Receipt Date: 20150710
  Transmission Date: 20151125
  Serious: Yes (Death, Hospitalization)
  Sender: FDA-Public Use
  Company Number: FR-009507513-1507FRA001194

PATIENT
  Age: 57 Year
  Sex: Male

DRUGS (10)
  1. DIFFU-K [Suspect]
     Active Substance: POTASSIUM CHLORIDE
     Dosage: 1 DF, QD
     Route: 048
  2. SIMPONI [Suspect]
     Active Substance: GOLIMUMAB
     Dosage: 1 DF, QM
     Route: 058
  3. KARDEGIC [Suspect]
     Active Substance: ASPIRIN LYSINE
     Dosage: 1 DF, QD
     Route: 048
  4. INIPOMP [Suspect]
     Active Substance: PANTOPRAZOLE SODIUM
  5. CANDESARTAN CILEXETIL. [Suspect]
     Active Substance: CANDESARTAN CILEXETIL
     Dosage: 16 MG, QD
     Route: 048
  6. NOVATREX (METHOTREXATE) [Suspect]
     Active Substance: METHOTREXATE SODIUM
     Dosage: 1 DF, 6 IN 1WEEK
     Route: 048
  7. SPECIAFOLDINE [Suspect]
     Active Substance: FOLIC ACID
     Route: 048
  8. CORTANCYL [Suspect]
     Active Substance: PREDNISONE
     Route: 048
  9. FOSAMAX [Suspect]
     Active Substance: ALENDRONATE SODIUM
     Route: 048
  10. NEBIVOLOL. [Suspect]
     Active Substance: NEBIVOLOL
     Dosage: 5 MG, QD
     Route: 048

REACTIONS (3)
  - Metastatic neoplasm [Fatal]
  - Metastases to peritoneum [Fatal]
  - Acute kidney injury [Fatal]

NARRATIVE: CASE EVENT DATE: 2015
